FAERS Safety Report 7673458-2 (Version None)
Quarter: 2011Q3

REPORT INFORMATION
  Report Type: 
  Country: None (occurrence: None)
  Receive Date: 20110810
  Receipt Date: 20110808
  Transmission Date: 20111222
  Serious: No
  Sender: FDA-Public Use
  Company Number: US-PFIZER INC-2011181692

PATIENT
  Sex: Female
  Weight: 79.365 kg

DRUGS (1)
  1. EFFEXOR XR [Suspect]
     Indication: DEPRESSION
     Dosage: UNK
     Route: 048
     Dates: start: 20110501, end: 20110807

REACTIONS (3)
  - CHILLS [None]
  - NIGHT SWEATS [None]
  - FEELING ABNORMAL [None]
